FAERS Safety Report 5322897-3 (Version None)
Quarter: 2007Q2

REPORT INFORMATION
  Report Type: 
  Country: None (occurrence: None)
  Receive Date: 20070511
  Receipt Date: 20070504
  Transmission Date: 20071010
  Serious: Yes (Other)
  Sender: FDA-Public Use
  Company Number: FR-PFIZER INC-2007036588

PATIENT
  Age: 60 Year
  Sex: Male

DRUGS (3)
  1. CHAMPIX [Suspect]
  2. SYMBICORT [Concomitant]
  3. SPIRIVA [Concomitant]

REACTIONS (2)
  - DELIRIUM [None]
  - INCOHERENT [None]
